FAERS Safety Report 4345274-0 (Version None)
Quarter: 2004Q2

REPORT INFORMATION
  Report Type: 
  Country: None (occurrence: None)
  Receive Date: 20040420
  Receipt Date: 20040406
  Transmission Date: 20050107
  Serious: Yes (Hospitalization)
  Sender: FDA-Public Use
  Company Number: US-JNJFOC-20030900464

PATIENT
  Age: 75 Year
  Sex: Female

DRUGS (12)
  1. INFLIXIMAB (INFLIXIMAB, RECOMBINANT) LYOPHILIZED POWDER [Suspect]
     Indication: RHEUMATOID ARTHRITIS
     Dosage: INTRAVENOUS
     Route: 042
     Dates: start: 20001027, end: 20030101
  2. METHOTREXATE [Concomitant]
  3. PREDNISONE [Concomitant]
  4. PRAVACHOL [Concomitant]
  5. TIAZAC [Concomitant]
  6. SYNTHROID [Concomitant]
  7. AXID [Concomitant]
  8. LASIX [Concomitant]
  9. MACRODANTIN [Concomitant]
  10. K-DUR 10 [Concomitant]
  11. EFFEXOR [Concomitant]
  12. FOSAMAX [Concomitant]

REACTIONS (4)
  - CHEST PAIN [None]
  - PLEURAL EFFUSION [None]
  - PNEUMONIA [None]
  - RHEUMATOID LUNG [None]
